FAERS Safety Report 21526174 (Version 1)
Quarter: 2022Q4

REPORT INFORMATION
  Report Type: Spontaneous
  Country: TR (occurrence: TR)
  Receive Date: 20221031
  Receipt Date: 20221031
  Transmission Date: 20230113
  Serious: Yes (Death, Other)
  Sender: FDA-Public Use
  Company Number: TR-SUN PHARMACEUTICAL INDUSTRIES LTD-2022RR-360749

PATIENT
  Age: 10 Year
  Sex: Female

DRUGS (9)
  1. TEMOZOLOMIDE [Suspect]
     Active Substance: TEMOZOLOMIDE
     Indication: Glioma
     Dosage: 150 MILLIGRAM, DAILY, ON DAYS 1-5, , 3 CYCLES
     Route: 065
  2. IRINOTECAN [Suspect]
     Active Substance: IRINOTECAN
     Indication: Glioma
     Dosage: 50 MILLIGRAM/SQ. METER, DAILY, ON DAY 1, 3 CYCLES
     Route: 065
  3. CISPLATIN [Suspect]
     Active Substance: CISPLATIN
     Indication: Glioma
     Dosage: 20 MILLIGRAM/SQ. METER, DAILY, DAY 1-5, FIRST CYCLE
     Route: 065
  4. VINCRISTINE [Suspect]
     Active Substance: VINCRISTINE
     Indication: Glioma
     Dosage: 1.5 MILLIGRAM/SQ. METER, DAILY, DAY 1, IN THE SECOND CYCLE
     Route: 065
  5. VINCRISTINE [Suspect]
     Active Substance: VINCRISTINE
     Dosage: 1.5 MILLIGRAM/SQ. METER, DAILY, DAY 1 AND 15, THIRD CYCLE
     Route: 065
  6. VINCRISTINE [Suspect]
     Active Substance: VINCRISTINE
     Dosage: 1.5 MILLIGRAM/SQ. METER, DAILY, DAY 1, , 3 CYCLES
     Route: 065
  7. CARBOPLATIN [Suspect]
     Active Substance: CARBOPLATIN
     Indication: Glioma
     Dosage: 150 MILLIGRAM/SQ. METER, DAILY, DAY 1 AND 15, THIRD CYCLE
     Route: 065
  8. ETOPOSIDE [Suspect]
     Active Substance: ETOPOSIDE
     Indication: Glioma
     Dosage: 50 MILLIGRAM/SQ. METER, DAILY, DAY 1-5, FIRST CYCLE
     Route: 065
  9. CYCLOPHOSPHAMIDE [Suspect]
     Active Substance: CYCLOPHOSPHAMIDE
     Indication: Glioma
     Dosage: 900 MILLIGRAM/SQ. METER, DAILY, DAY 1-2
     Route: 065

REACTIONS (1)
  - Disease progression [Fatal]
